FAERS Safety Report 7355964-3 (Version None)
Quarter: 2011Q1

REPORT INFORMATION
  Report Type: 
  Country: None (occurrence: None)
  Receive Date: 20110316
  Receipt Date: 20110314
  Transmission Date: 20110831
  Serious: Yes (Other)
  Sender: FDA-Public Use
  Company Number: DE-ABBOTT-11P-062-0711495-00

PATIENT
  Age: 34 Year
  Sex: Female

DRUGS (1)
  1. ZEMPLAR [Suspect]
     Indication: RENAL FAILURE

REACTIONS (3)
  - GRAFT VERSUS HOST DISEASE [None]
  - CHRONIC OBSTRUCTIVE PULMONARY DISEASE [None]
  - IMMUNOSUPPRESSION [None]
